FAERS Safety Report 7484128-8 (Version None)
Quarter: 2011Q2

REPORT INFORMATION
  Report Type: 
  Country: None (occurrence: None)
  Receive Date: 20110513
  Receipt Date: 20110513
  Transmission Date: 20111010
  Serious: No
  Sender: FDA-Public Use
  Company Number: None

PATIENT

DRUGS (1)
  1. VANCOMYCIN [Suspect]
     Indication: CELLULITIS
     Dosage: 1000 MG DAILY IV
     Route: 042

REACTIONS (3)
  - INCORRECT DRUG ADMINISTRATION RATE [None]
  - CARDIAC DISORDER [None]
  - RED MAN SYNDROME [None]
